FAERS Safety Report 10425089 (Version 1)
Quarter: 2014Q3

REPORT INFORMATION
  Report Type: Spontaneous
  Country: US (occurrence: US)
  Receive Date: 20140902
  Receipt Date: 20140902
  Transmission Date: 20150326
  Serious: Yes (Death)
  Sender: FDA-Public Use
  Company Number: US-GLAXOSMITHKLINE-A1087312A

PATIENT
  Sex: Female
  Weight: 53 kg

DRUGS (4)
  1. VOTRIENT [Suspect]
     Active Substance: PAZOPANIB HYDROCHLORIDE
     Indication: ANGIOSARCOMA
     Dosage: 400MG PER DAY
     Route: 048
     Dates: start: 201405
  2. COREG [Concomitant]
     Active Substance: CARVEDILOL
  3. MICARDIS [Concomitant]
     Active Substance: TELMISARTAN
  4. NYSTATIN. [Concomitant]
     Active Substance: NYSTATIN

REACTIONS (1)
  - Death [Fatal]
